FAERS Safety Report 7798736-8 (Version None)
Quarter: 2011Q4

REPORT INFORMATION
  Report Type: 
  Country: None (occurrence: None)
  Receive Date: 20111006
  Receipt Date: 20110927
  Transmission Date: 20120403
  Serious: No
  Sender: FDA-Public Use
  Company Number: US-BIOGENIDEC-2011BI037166

PATIENT
  Age: 27 Year
  Sex: Female

DRUGS (1)
  1. AVONEX [Suspect]
     Indication: MULTIPLE SCLEROSIS
     Route: 030
     Dates: start: 20110902

REACTIONS (9)
  - DYSURIA [None]
  - CENTRAL NERVOUS SYSTEM LESION [None]
  - FEELING HOT [None]
  - HEADACHE [None]
  - BURNING SENSATION [None]
  - EAR PAIN [None]
  - NEPHROLITHIASIS [None]
  - PYREXIA [None]
  - FLUSHING [None]
